FAERS Safety Report 8818757 (Version 2)
Quarter: 2013Q2

REPORT INFORMATION
  Report Type: Spontaneous
  Country: AU (occurrence: AU)
  Receive Date: 20121001
  Receipt Date: 20130614
  Transmission Date: 20140414
  Serious: Yes (Death, Hospitalization, Other)
  Sender: FDA-Public Use
  Company Number: AU-ROCHE-1138226

PATIENT
  Age: 64 Year
  Sex: Male

DRUGS (1)
  1. XELODA [Suspect]
     Indication: HEAD AND NECK CANCER METASTATIC
     Route: 065
     Dates: start: 200507, end: 20081128

REACTIONS (3)
  - Head and neck cancer metastatic [Fatal]
  - Lower respiratory tract infection [Unknown]
  - Drug effect incomplete [Unknown]
